FAERS Safety Report 5401220-X (Version None)
Quarter: 2007Q3

REPORT INFORMATION
  Report Type: 
  Country: None (occurrence: None)
  Receive Date: 20070731
  Receipt Date: 20070723
  Transmission Date: 20080115
  Serious: Yes (Hospitalization, Other)
  Sender: FDA-Public Use
  Company Number: PHEH2007US04428

PATIENT
  Age: 66 Year
  Sex: Female
  Weight: 66.439 kg

DRUGS (22)
  1. ZELNORM [Suspect]
     Indication: CONSTIPATION
     Dosage: 6 MG, BID
     Route: 048
     Dates: start: 20060101, end: 20070405
  2. FOSAMAX [Concomitant]
     Dosage: 70 MG QW ON MONDAY
     Route: 048
  3. PLAVIX [Concomitant]
     Dosage: UNK, UNK
     Route: 048
  4. DETROL [Concomitant]
     Dosage: UNK, UNK
     Route: 048
  5. POTASSIUM CHLORIDE [Concomitant]
     Dosage: UNK, UNK
     Route: 048
  6. ZITHROMAX [Concomitant]
     Indication: SINUSITIS
     Dosage: UNK, PRN
  7. DARVOCET [Concomitant]
     Dosage: UNK, UNK
     Route: 048
  8. LIPITOR [Concomitant]
     Dosage: UNK, UNK
     Route: 048
  9. PREMARIN [Concomitant]
     Dosage: UNK, UNK
     Route: 048
  10. LEVOTHYROXINE SODIUM [Concomitant]
     Dosage: UNK, UNK
     Route: 048
  11. ZOLOFT [Concomitant]
     Dosage: UNK, UNK
     Route: 048
  12. XANAX [Concomitant]
     Dosage: UNK, UNK
     Route: 048
  13. LUNESTA [Concomitant]
     Dosage: UNK, UNK
     Route: 048
  14. ASPIRIN [Concomitant]
     Dosage: 81MG, UNK
     Route: 048
  15. OMEPRAZOLE [Concomitant]
     Dosage: UNK, UNK
     Route: 048
  16. NORVASC [Concomitant]
     Dosage: 10 MG, QD
     Route: 048
     Dates: start: 20061018
  17. NORVASC [Concomitant]
     Dosage: UNK, UNK
     Route: 048
     Dates: end: 20061018
  18. HYZAAR [Concomitant]
     Dosage: UNK, UNK
  19. ATENOLOL [Concomitant]
     Dosage: UNK, UNK
     Route: 048
  20. HYDROCHLOROTHIAZIDE [Concomitant]
     Dosage: 25 MG, QD
     Route: 048
     Dates: end: 20070103
  21. LORATADINE [Concomitant]
     Dosage: 10 MG, PRN
     Route: 048
  22. LOSARTAN POTASSIUM [Concomitant]
     Dosage: 100 MG LOS/ 12.5 MG HCTZ, QD
     Route: 048
     Dates: start: 20070103

REACTIONS (17)
  - ANXIETY [None]
  - ASTHENIA [None]
  - BLOOD PRESSURE INADEQUATELY CONTROLLED [None]
  - CARPAL TUNNEL DECOMPRESSION [None]
  - DEPRESSION [None]
  - DIZZINESS [None]
  - DYSPNOEA EXERTIONAL [None]
  - HEADACHE [None]
  - HEART RATE INCREASED [None]
  - INTERMITTENT CLAUDICATION [None]
  - ORTHOPNOEA [None]
  - PALPITATIONS [None]
  - POSTNASAL DRIP [None]
  - PRODUCTIVE COUGH [None]
  - STENT PLACEMENT [None]
  - SUPRAVENTRICULAR EXTRASYSTOLES [None]
  - VISUAL ACUITY REDUCED [None]
